FAERS Safety Report 21530510 (Version 1)
Quarter: 2022Q4

REPORT INFORMATION
  Report Type: Spontaneous
  Country: US (occurrence: None)
  Receive Date: 20221028
  Receipt Date: 20221028
  Transmission Date: 20230113
  Serious: Yes (Disabling)
  Sender: FDA-Public Use
  Company Number: None

PATIENT
  Age: 25 Year
  Sex: Male
  Weight: 81 kg

DRUGS (1)
  1. FINASTERIDE\MINOXIDIL [Suspect]
     Active Substance: FINASTERIDE\MINOXIDIL
     Indication: Alopecia
     Dosage: OTHER QUANTITY : 1 SPRAY(S);?FREQUENCY : DAILY;?
     Route: 061
     Dates: start: 20220909, end: 20220923

REACTIONS (3)
  - Loss of libido [None]
  - Erectile dysfunction [None]
  - Feeling abnormal [None]

NARRATIVE: CASE EVENT DATE: 20220923
